FAERS Safety Report 5121490-5 (Version None)
Quarter: 2006Q4

REPORT INFORMATION
  Report Type: 
  Country: None (occurrence: None)
  Receive Date: 20061003
  Receipt Date: 20060920
  Transmission Date: 20070319
  Serious: Yes (Hospitalization)
  Sender: FDA-Public Use
  Company Number: 2006102773

PATIENT
  Age: 50 Year
  Sex: Male
  Weight: 109 kg

DRUGS (13)
  1. LYRICA [Suspect]
     Indication: EPIDURITIS
     Dosage: 150 MG (75 MG, 2 IN 1 D)
     Dates: start: 20060720, end: 20060802
  2. THERALENE (ALIMEMAZINE TARTRATE) [Concomitant]
  3. OXAZEPAM [Concomitant]
  4. TIAPRIDAL (TIAPRIDE) [Concomitant]
  5. EQUANIL [Concomitant]
  6. ACETAMINOPHEN [Concomitant]
  7. HAVLANE (LOPRAZOLAM MESILATE) [Concomitant]
  8. MIRTAZAPINE [Concomitant]
  9. ZOLPIDEM TARTRATE [Concomitant]
  10. DURAGESIC-100 [Concomitant]
  11. ZESTRIL [Concomitant]
  12. INDAPAMIDE [Concomitant]
  13. ANAFRANIL [Concomitant]

REACTIONS (2)
  - GLUCOSE TOLERANCE IMPAIRED [None]
  - HYPERGLYCAEMIA [None]
